FAERS Safety Report 5408802-X (Version None)
Quarter: 2007Q3

REPORT INFORMATION
  Report Type: 
  Country: None (occurrence: None)
  Receive Date: 20070713
  Receipt Date: 20070206
  Transmission Date: 20080115
  Serious: Yes (Hospitalization, Other)
  Sender: FDA-Public Use
  Company Number: US-JNJFOC-20060605897

PATIENT
  Age: 31 Year
  Sex: Female
  Weight: 88.4514 kg

DRUGS (13)
  1. ORTHO EVRA [Suspect]
     Indication: DRUG USE FOR UNKNOWN INDICATION
     Dosage: TRANSDERMAL
     Route: 062
     Dates: start: 20050101, end: 20060101
  2. SINGULAIR [Concomitant]
  3. CRESTOR [Concomitant]
  4. FLOVENT [Concomitant]
  5. ALBUTEROL [Concomitant]
  6. NEXIUM [Concomitant]
  7. ZOLOFT [Concomitant]
  8. DARVOCET-N 100 [Concomitant]
  9. ASCORBIC ACID [Concomitant]
  10. MUCINEX [Concomitant]
  11. SALINEX (SODIUM CHLORIDE) [Concomitant]
  12. LORATADINE [Concomitant]
  13. SEROQUEL [Concomitant]

REACTIONS (1)
  - DEEP VEIN THROMBOSIS [None]
